FAERS Safety Report 5001663-2 (Version None)
Quarter: 2006Q2

REPORT INFORMATION
  Report Type: 
  Country: None (occurrence: None)
  Receive Date: 20060511
  Receipt Date: 20060511
  Transmission Date: 20061013
  Serious: Yes (Hospitalization)
  Sender: FDA-Public Use
  Company Number: None

PATIENT
  Sex: Male
  Weight: 111.2 kg

DRUGS (7)
  1. IMATINIB MESYLATE    (NOVARTIS) [Suspect]
     Indication: GLIOBLASTOMA MULTIFORME
     Dosage: 400 MG  PO QD
     Route: 048
     Dates: start: 20051025, end: 20060315
  2. HYDREA [Suspect]
     Indication: GLIOBLASTOMA MULTIFORME
     Dosage: 500 MG PO
     Route: 048
     Dates: start: 20051025, end: 20060315
  3. PTK,  NOVARTIS [Suspect]
     Dosage: 500 MG  PO  BID
     Route: 048
     Dates: start: 20051025, end: 20060315
  4. SCH66366 [Concomitant]
  5. TEMOZOLOMIDE [Concomitant]
  6. KEPPRA [Concomitant]
  7. PREVACID [Concomitant]

REACTIONS (3)
  - ANXIETY [None]
  - ATRIAL FIBRILLATION [None]
  - CONVULSION [None]
